FAERS Safety Report 9281010 (Version 1)
Quarter: 2013Q2

REPORT INFORMATION
  Report Type: Spontaneous
  Country: US (occurrence: US)
  Receive Date: 20130509
  Receipt Date: 20130509
  Transmission Date: 20140414
  Serious: Yes (Death)
  Sender: FDA-Public Use
  Company Number: US-GLAXOSMITHKLINE-A1022035A

PATIENT
  Age: 29 Year
  Sex: Male

DRUGS (17)
  1. LAMICTAL [Suspect]
     Indication: MAJOR DEPRESSION
     Dosage: 200MG PER DAY
     Route: 048
     Dates: start: 20130220
  2. VISTARIL [Concomitant]
  3. RISPERDAL [Concomitant]
  4. NEURONTIN [Concomitant]
  5. PRISTIQ [Concomitant]
  6. LITHIUM [Concomitant]
  7. TRAZODONE [Concomitant]
  8. FLONASE [Concomitant]
  9. GLUCOPHAGE [Concomitant]
  10. HUMULIN R [Concomitant]
  11. ISOSORBIDE MONONITRATE [Concomitant]
  12. LISINOPRIL [Concomitant]
  13. TRICOR [Concomitant]
  14. ZYRTEC [Concomitant]
  15. ASPIRIN [Concomitant]
  16. MULTIVITAMIN [Concomitant]
  17. FISH OIL [Concomitant]

REACTIONS (3)
  - Death [Fatal]
  - Gastroenteritis viral [Unknown]
  - Vomiting [Unknown]
